FAERS Safety Report 19979467 (Version 2)
Quarter: 2021Q4

REPORT INFORMATION
  Report Type: Report from Study
  Country: ZA (occurrence: ZA)
  Receive Date: 20211021
  Receipt Date: 20211107
  Transmission Date: 20220303
  Serious: No
  Sender: FDA-Public Use
  Company Number: ZA-BAYER-2021A230670

PATIENT

DRUGS (2)
  1. EYLEA [Suspect]
     Active Substance: AFLIBERCEPT
     Indication: Chorioretinopathy
     Dosage: OD
     Dates: start: 20210825, end: 20210825
  2. EYLEA [Suspect]
     Active Substance: AFLIBERCEPT
     Dosage: OD
     Dates: start: 20211006, end: 20211006

REACTIONS (2)
  - Drug effective for unapproved indication [Unknown]
  - Off label use [Unknown]
